FAERS Safety Report 9016695 (Version 2)
Quarter: 2013Q1

REPORT INFORMATION
  Report Type: Spontaneous
  Country: AU (occurrence: AU)
  Receive Date: 20130116
  Receipt Date: 20130124
  Transmission Date: 20140127
  Serious: Yes (Other)
  Sender: FDA-Public Use
  Company Number: AU-ROCHE-1180270

PATIENT
  Age: 40 Year
  Sex: Female

DRUGS (2)
  1. HERCEPTIN [Suspect]
     Indication: BREAST CANCER METASTATIC
     Route: 065
  2. TAXOTERE [Concomitant]

REACTIONS (2)
  - Portal hypertension [Unknown]
  - Portal vein thrombosis [Unknown]
